FAERS Safety Report 13381030 (Version 1)
Quarter: 2017Q1

REPORT INFORMATION
  Report Type: Spontaneous
  Country: US (occurrence: US)
  Receive Date: 20170329
  Receipt Date: 20170329
  Transmission Date: 20170429
  Serious: No
  Sender: FDA-Public Use
  Company Number: US-ELI_LILLY_AND_COMPANY-US201703010524

PATIENT
  Sex: Female

DRUGS (2)
  1. CYMBALTA [Suspect]
     Active Substance: DULOXETINE HYDROCHLORIDE
     Indication: PRODUCT USED FOR UNKNOWN INDICATION
     Dosage: 60 MG, UNKNOWN
     Route: 065
     Dates: start: 2011
  2. CYMBALTA [Suspect]
     Active Substance: DULOXETINE HYDROCHLORIDE
     Dosage: UNK UNK, UNKNOWN
     Route: 065
     Dates: end: 20170215

REACTIONS (4)
  - Fatigue [Not Recovered/Not Resolved]
  - Affect lability [Not Recovered/Not Resolved]
  - Myalgia [Not Recovered/Not Resolved]
  - Pain [Not Recovered/Not Resolved]
